FAERS Safety Report 24328126 (Version 1)
Quarter: 2024Q3

REPORT INFORMATION
  Report Type: Spontaneous
  Country: US (occurrence: US)
  Receive Date: 20240917
  Receipt Date: 20240917
  Transmission Date: 20241017
  Serious: Yes (Other)
  Sender: PFIZER
  Company Number: US-PFIZER INC-PV202400121527

PATIENT
  Age: 46 Year
  Sex: Male

DRUGS (1)
  1. INLYTA [Suspect]
     Active Substance: AXITINIB
     Dosage: UNK

REACTIONS (6)
  - Hypothyroidism [Recovering/Resolving]
  - Blister [Recovering/Resolving]
  - Dry skin [Recovering/Resolving]
  - Dry mouth [Recovering/Resolving]
  - Visual impairment [Recovering/Resolving]
  - Hypertension [Recovering/Resolving]
